FAERS Safety Report 8539002-2 (Version None)
Quarter: 2012Q3

REPORT INFORMATION
  Report Type: 
  Country: None (occurrence: None)
  Receive Date: 20120726
  Receipt Date: 20120723
  Transmission Date: 20120928
  Serious: Yes (Death)
  Sender: FDA-Public Use
  Company Number: PHHY2011US58931

PATIENT
  Sex: Female
  Weight: 127 kg

DRUGS (1)
  1. TASIGNA [Suspect]
     Indication: CHRONIC MYELOID LEUKAEMIA
     Dosage: 200 MG, BID
     Route: 048
     Dates: start: 20110502

REACTIONS (5)
  - MYOCARDIAL INFARCTION [None]
  - DIARRHOEA [None]
  - FATIGUE [None]
  - VOMITING [None]
  - NAUSEA [None]
